FAERS Safety Report 10590752 (Version 1)
Quarter: 2014Q4

REPORT INFORMATION
  Report Type: Report from Study
  Country: CA (occurrence: CA)
  Receive Date: 20141118
  Receipt Date: 20141118
  Transmission Date: 20150529
  Serious: Yes (Other)
  Sender: FDA-Public Use
  Company Number: CA-BRISTOL-MYERS SQUIBB COMPANY-21594791

PATIENT
  Age: 64 Year
  Sex: Female

DRUGS (6)
  1. VITAMIN D [Concomitant]
     Active Substance: CHOLECALCIFEROL
  2. CELEBREX [Concomitant]
     Active Substance: CELECOXIB
  3. ORENCIA [Suspect]
     Active Substance: ABATACEPT
     Indication: RHEUMATOID ARTHRITIS
     Route: 042
     Dates: start: 201012, end: 201309
  4. METHOTREXATE [Concomitant]
     Active Substance: METHOTREXATE
  5. CALCIUM [Concomitant]
     Active Substance: CALCIUM
  6. FOLIC ACID. [Concomitant]
     Active Substance: FOLIC ACID

REACTIONS (2)
  - Bronchial disorder [Unknown]
  - Arthropathy [Unknown]
